FAERS Safety Report 4947189-3 (Version None)
Quarter: 2006Q1

REPORT INFORMATION
  Report Type: 
  Country: None (occurrence: None)
  Receive Date: 20060317
  Receipt Date: 20060308
  Transmission Date: 20060701
  Serious: Yes (Hospitalization, Other)
  Sender: FDA-Public Use
  Company Number: CN-ABBOTT-06P-035-0327413-00

PATIENT
  Age: 5 Year
  Sex: Male

DRUGS (2)
  1. VALPROATE SODIUM [Suspect]
     Indication: EPILEPSY
     Route: 048
     Dates: start: 20040311, end: 20040501
  2. VALPROATE SODIUM [Suspect]
     Route: 048

REACTIONS (5)
  - BRAIN OEDEMA [None]
  - CONVULSION [None]
  - COORDINATION ABNORMAL [None]
  - DRUG INEFFECTIVE [None]
  - ENCEPHALOPATHY [None]
